FAERS Safety Report 6112944-3 (Version None)
Quarter: 2009Q1

REPORT INFORMATION
  Report Type: 
  Country: None (occurrence: None)
  Receive Date: 20090312
  Receipt Date: 20090227
  Transmission Date: 20090719
  Serious: Yes (Life-Threatening, Hospitalization)
  Sender: FDA-Public Use
  Company Number: CN-ROCHE-609240

PATIENT
  Age: 47 Year
  Sex: Female
  Weight: 60 kg

DRUGS (3)
  1. PEGASYS [Suspect]
     Indication: HEPATITIS C
     Route: 058
     Dates: start: 20081020, end: 20090106
  2. RIBAVIRIN [Concomitant]
     Indication: HEPATITIS C
     Route: 048
     Dates: start: 20081020, end: 20081220
  3. RIBAVIRIN [Concomitant]
     Route: 048
     Dates: start: 20081220, end: 20090108

REACTIONS (6)
  - APLASTIC ANAEMIA [None]
  - HEPATITIS C RNA POSITIVE [None]
  - HERPES VIRUS INFECTION [None]
  - PYREXIA [None]
  - RASH [None]
  - SHOCK HAEMORRHAGIC [None]
